FAERS Safety Report 4739924-4 (Version None)
Quarter: 2005Q3

REPORT INFORMATION
  Report Type: 
  Country: None (occurrence: None)
  Receive Date: 20050810
  Receipt Date: 20030923
  Transmission Date: 20060218
  Serious: Yes (Other)
  Sender: FDA-Public Use
  Company Number: US-GLAXOSMITHKLINE-A0428499A

PATIENT
  Sex: Male

DRUGS (4)
  1. PAXIL [Suspect]
     Indication: MAJOR DEPRESSION
     Route: 048
  2. DESIPRAMINE HCL [Concomitant]
     Indication: MAJOR DEPRESSION
     Dosage: 50MG IN THE MORNING
     Route: 048
  3. NEURONTIN [Concomitant]
     Indication: MAJOR DEPRESSION
     Dosage: 400MG THREE TIMES PER DAY
     Route: 048
  4. DEPAKOTE [Concomitant]
     Indication: MAJOR DEPRESSION
     Route: 048

REACTIONS (6)
  - DIZZINESS [None]
  - DRUG WITHDRAWAL SYNDROME [None]
  - FATIGUE [None]
  - HEADACHE [None]
  - NAUSEA [None]
  - SUICIDAL IDEATION [None]
